FAERS Safety Report 24876489 (Version 2)
Quarter: 2025Q1

REPORT INFORMATION
  Report Type: Spontaneous
  Country: US (occurrence: US)
  Receive Date: 20250123
  Receipt Date: 20250228
  Transmission Date: 20250409
  Serious: Yes (Death, Hospitalization)
  Sender: GAMIDA CELL
  Company Number: US-GAMIDA CELL LTD.-GC-25US000014

PATIENT

DRUGS (5)
  1. OMISIRGE [Suspect]
     Active Substance: OMIDUBICEL-ONLV
     Indication: T-cell lymphoma
     Dates: start: 20240717, end: 20240717
  2. TACROLIMUS [Concomitant]
     Active Substance: TACROLIMUS
     Indication: Graft versus host disease
  3. TACROLIMUS [Concomitant]
     Active Substance: TACROLIMUS
     Indication: Prophylaxis
  4. MYCOPHENOLATE MOFETIL [Concomitant]
     Active Substance: MYCOPHENOLATE MOFETIL
     Indication: Graft versus host disease
  5. MYCOPHENOLATE MOFETIL [Concomitant]
     Active Substance: MYCOPHENOLATE MOFETIL
     Indication: Prophylaxis

REACTIONS (8)
  - Intestinal haemorrhage [Fatal]
  - Multiple organ dysfunction syndrome [Fatal]
  - Septic shock [Fatal]
  - Graft versus host disease in gastrointestinal tract [Fatal]
  - Acute graft versus host disease in intestine [Fatal]
  - Oral herpes [Recovered/Resolved]
  - Adenovirus infection [Recovered/Resolved]
  - Human herpesvirus 6 infection [Recovered/Resolved]

NARRATIVE: CASE EVENT DATE: 20240729
